FAERS Safety Report 11640471 (Version 2)
Quarter: 2015Q4

REPORT INFORMATION
  Report Type: Spontaneous
  Country: US (occurrence: US)
  Receive Date: 20151019
  Receipt Date: 20151117
  Transmission Date: 20160304
  Serious: No
  Sender: FDA-Public Use
  Company Number: US-GLAXOSMITHKLINE-US2015146081

PATIENT
  Age: 54 Year
  Sex: Female
  Weight: 48.98 kg

DRUGS (2)
  1. BENLYSTA [Suspect]
     Active Substance: BELIMUMAB
     Indication: SYSTEMIC LUPUS ERYTHEMATOSUS
     Dosage: UNK
     Route: 042
     Dates: start: 201506
  2. BENLYSTA [Suspect]
     Active Substance: BELIMUMAB
     Dosage: 400 MG, UNK

REACTIONS (3)
  - Dizziness [Unknown]
  - Liver function test abnormal [Unknown]
  - Pyrexia [Unknown]

NARRATIVE: CASE EVENT DATE: 201507
